FAERS Safety Report 25603745 (Version 1)
Quarter: 2025Q3

REPORT INFORMATION
  Report Type: Spontaneous
  Country: EU (occurrence: EU)
  Receive Date: 20250725
  Receipt Date: 20250725
  Transmission Date: 20251021
  Serious: Yes (Other)
  Sender: SANDOZ
  Company Number: EU-ORG-100000376-20250017

PATIENT
  Age: 76 Year
  Sex: Male

DRUGS (2)
  1. BIMATOPROST\TIMOLOL [Suspect]
     Active Substance: BIMATOPROST\TIMOLOL
     Indication: Glaucoma
     Route: 047
  2. BRIMONIDINE [Suspect]
     Active Substance: BRIMONIDINE TARTRATE
     Indication: Glaucoma
     Route: 047

REACTIONS (3)
  - Corneal opacity [Recovering/Resolving]
  - Conjunctival irritation [Recovering/Resolving]
  - Conjunctival scar [Recovering/Resolving]
